FAERS Safety Report 6688356-0 (Version None)
Quarter: 2010Q2

REPORT INFORMATION
  Report Type: 
  Country: None (occurrence: None)
  Receive Date: 20100420
  Receipt Date: 20100409
  Transmission Date: 20101027
  Serious: Yes (Other)
  Sender: FDA-Public Use
  Company Number: PHHY2010MX13739

PATIENT
  Age: 71 Year
  Sex: Female

DRUGS (2)
  1. EXFORGE [Suspect]
     Indication: HYPERTENSION
     Dosage: 1 TABLET (160/10 MG) DAILY
     Route: 048
     Dates: start: 20100101
  2. EXFORGE [Suspect]
     Dosage: 2 TABLETS (160/10 MG) DAILY
     Route: 048
     Dates: end: 20100212

REACTIONS (8)
  - BLOOD PRESSURE INCREASED [None]
  - EMOTIONAL DISORDER [None]
  - EYE DISORDER [None]
  - EYE HAEMORRHAGE [None]
  - EYELID OEDEMA [None]
  - FLUID RETENTION [None]
  - OEDEMA PERIPHERAL [None]
  - TACHYCARDIA [None]
